FAERS Safety Report 6599821-9 (Version None)
Quarter: 2010Q1

REPORT INFORMATION
  Report Type: 
  Country: None (occurrence: None)
  Receive Date: 20100217
  Receipt Date: 20100204
  Transmission Date: 20100710
  Serious: Yes (Other)
  Sender: FDA-Public Use
  Company Number: US-1180740

PATIENT
  Sex: Female
  Weight: 53.5244 kg

DRUGS (4)
  1. BSS PLUS [Suspect]
     Indication: CATARACT OPERATION
     Dosage: (500 ML INTRAOCULAR)
     Route: 031
     Dates: start: 20100125, end: 20100125
  2. EPINEPHRINE [Concomitant]
  3. LEVOXYL [Concomitant]
  4. VISCOAT [Concomitant]

REACTIONS (2)
  - ANTERIOR CHAMBER OPACITY [None]
  - TOXIC ANTERIOR SEGMENT SYNDROME [None]
